FAERS Safety Report 24530702 (Version 1)
Quarter: 2024Q4

REPORT INFORMATION
  Report Type: Spontaneous
  Country: PT (occurrence: PT)
  Receive Date: 20241021
  Receipt Date: 20241021
  Transmission Date: 20250114
  Serious: Yes (Other)
  Sender: MYLAN
  Company Number: None

PATIENT
  Age: 51 Year
  Sex: Female
  Weight: 74 kg

DRUGS (7)
  1. LYRICA [Suspect]
     Active Substance: PREGABALIN
     Indication: Pain
     Dosage: 300 MILLIGRAM
     Route: 048
     Dates: start: 20240923, end: 20240924
  2. ANASTROZOLE [Concomitant]
     Active Substance: ANASTROZOLE
     Dosage: UNK
     Route: 065
  3. XARELTO [Concomitant]
     Active Substance: RIVAROXABAN
     Dosage: UNK
     Route: 065
  4. PLAQUINOL [Concomitant]
     Active Substance: HYDROXYCHLOROQUINE SULFATE
     Dosage: UNK
     Route: 048
  5. CYMBALTA [Concomitant]
     Active Substance: DULOXETINE HYDROCHLORIDE
     Dosage: UNK
     Route: 065
  6. CYCLOBENZAPRINE [Concomitant]
     Active Substance: CYCLOBENZAPRINE
     Dosage: SOS
     Route: 065
  7. ETORICOXIB [Concomitant]
     Active Substance: ETORICOXIB
     Dosage: SOS
     Route: 065

REACTIONS (6)
  - Tachycardia [Recovered/Resolved]
  - Dizziness [Recovered/Resolved]
  - Somnolence [Recovered/Resolved]
  - Dry mouth [Recovered/Resolved]
  - Asthenia [Recovered/Resolved]
  - Dyspnoea [Recovered/Resolved]

NARRATIVE: CASE EVENT DATE: 20240924
